FAERS Safety Report 4447656-5 (Version None)
Quarter: 2004Q3

REPORT INFORMATION
  Report Type: 
  Country: None (occurrence: None)
  Receive Date: 20040913
  Receipt Date: 20040901
  Transmission Date: 20050211
  Serious: Yes (Hospitalization)
  Sender: FDA-Public Use
  Company Number: US-JNJFOC-20040900774

PATIENT
  Sex: Female

DRUGS (7)
  1. DURAGESIC [Suspect]
     Route: 062
     Dates: start: 20020101
  2. DURAGESIC [Suspect]
     Route: 062
     Dates: start: 20020101
  3. NEURONTIN [Concomitant]
     Route: 049
  4. EFFEXOR [Concomitant]
     Route: 049
  5. IMITREX [Concomitant]
     Dosage: AS NEEDED
     Route: 030
  6. PHENERGAN HCL [Concomitant]
     Dosage: AS NEEDED
     Route: 030
  7. TOPROL-XL [Concomitant]
     Route: 049

REACTIONS (3)
  - MIGRAINE [None]
  - PHARMACEUTICAL PRODUCT COMPLAINT [None]
  - THERAPEUTIC RESPONSE DECREASED [None]
